FAERS Safety Report 6990139-9 (Version None)
Quarter: 2010Q3

REPORT INFORMATION
  Report Type: 
  Country: None (occurrence: None)
  Receive Date: 20100916
  Receipt Date: 20100517
  Transmission Date: 20110219
  Serious: Yes (Other)
  Sender: FDA-Public Use
  Company Number: US-PFIZER INC-2010045380

PATIENT
  Sex: Female
  Weight: 90.703 kg

DRUGS (7)
  1. LYRICA [Suspect]
     Indication: FIBROMYALGIA
     Dosage: 75MG DAILY
     Route: 048
     Dates: start: 20100222, end: 20100315
  2. LYRICA [Suspect]
     Dosage: 75 MG, 2X/DAY
     Route: 048
     Dates: start: 20100316, end: 20100407
  3. TRAZODONE [Concomitant]
     Indication: SLEEP DISORDER
     Dosage: 50MG
     Dates: start: 20090101, end: 20100301
  4. TRAZODONE [Concomitant]
     Dosage: 150MG DAILY
     Dates: start: 20100301
  5. CYMBALTA [Concomitant]
     Indication: DEPRESSION
     Dosage: UNK
     Dates: start: 20090101
  6. LEXAPRO [Concomitant]
     Dosage: UNK
     Dates: start: 20090101
  7. LORCET-HD [Concomitant]
     Dosage: UNK
     Dates: start: 20090101

REACTIONS (6)
  - ARTHRALGIA [None]
  - GAIT DISTURBANCE [None]
  - INAPPROPRIATE SCHEDULE OF DRUG ADMINISTRATION [None]
  - JOINT SWELLING [None]
  - MYALGIA [None]
  - OEDEMA PERIPHERAL [None]
